FAERS Safety Report 7103967-6 (Version None)
Quarter: 2010Q4

REPORT INFORMATION
  Report Type: 
  Country: None (occurrence: None)
  Receive Date: 20101115
  Receipt Date: 20101109
  Transmission Date: 20110411
  Serious: Yes (Life-Threatening, Hospitalization, Other)
  Sender: FDA-Public Use
  Company Number: FR-PFIZER INC-2009279341

PATIENT
  Age: 39 Year
  Sex: Female

DRUGS (10)
  1. SALAZOPYRINE [Suspect]
     Dosage: UNK, 1X/DAY
     Route: 048
     Dates: start: 20090825, end: 20090905
  2. METHOTREXATE SODIUM [Suspect]
     Dosage: UNK
     Dates: start: 20090909, end: 20090918
  3. METHOTREXATE SODIUM [Suspect]
     Dosage: 4 DF, 1X/DAY
     Route: 048
     Dates: start: 20090909, end: 20090101
  4. VOLTAREN [Suspect]
     Dosage: 1 DF, 1X/DAY
     Route: 048
     Dates: start: 20090825, end: 20090906
  5. RIFINAH [Suspect]
     Dosage: UNK
     Dates: start: 20090909, end: 20090918
  6. RIFINAH [Suspect]
     Dosage: 1 DF, 1X/DAY
     Route: 048
     Dates: start: 20090909, end: 20090914
  7. ACUPAN [Suspect]
     Dosage: UNK
     Dates: start: 20090825, end: 20090909
  8. NEXIUM [Suspect]
     Dosage: UNK
     Dates: start: 20090825, end: 20090909
  9. ENBREL [Concomitant]
     Dosage: UNK
  10. KLIPAL [Concomitant]
     Indication: RHEUMATOID ARTHRITIS

REACTIONS (11)
  - ABORTION SPONTANEOUS [None]
  - CYTOLYTIC HEPATITIS [None]
  - DRUG RASH WITH EOSINOPHILIA AND SYSTEMIC SYMPTOMS [None]
  - EOSINOPHILIA [None]
  - FACE OEDEMA [None]
  - LYMPHADENOPATHY [None]
  - LYMPHOCYTOSIS [None]
  - MONONUCLEOSIS SYNDROME [None]
  - PYREXIA [None]
  - RASH [None]
  - RASH MACULO-PAPULAR [None]
